FAERS Safety Report 16388193 (Version 5)
Quarter: 2019Q3

REPORT INFORMATION
  Report Type: Spontaneous
  Country: IL (occurrence: IL)
  Receive Date: 20190604
  Receipt Date: 20190716
  Transmission Date: 20191004
  Serious: Yes (Other)
  Sender: FDA-Public Use
  Company Number: PHHY2019IL126355

PATIENT
  Age: 59 Year
  Sex: Female

DRUGS (12)
  1. RECLAST [Suspect]
     Active Substance: ZOLEDRONIC ACID
     Dosage: UNK
     Route: 065
     Dates: start: 20161128
  2. IBRANCE [Suspect]
     Active Substance: PALBOCICLIB
     Indication: BREAST CANCER METASTATIC
     Dosage: UNK
     Route: 065
     Dates: start: 20180517
  3. AROMASIN [Suspect]
     Active Substance: EXEMESTANE
     Indication: BREAST CANCER METASTATIC
     Dosage: UNK
     Route: 065
     Dates: start: 201901, end: 201905
  4. XELODA [Suspect]
     Active Substance: CAPECITABINE
     Indication: BREAST CANCER METASTATIC
     Dosage: UNK
     Route: 065
     Dates: start: 20161128
  5. RECLAST [Suspect]
     Active Substance: ZOLEDRONIC ACID
     Indication: METASTASES TO BONE
     Dosage: 4 MG, QD
     Route: 065
     Dates: start: 20151011
  6. RECLAST [Suspect]
     Active Substance: ZOLEDRONIC ACID
     Dosage: UNK
     Route: 065
     Dates: start: 20160815, end: 201610
  7. FEMARA [Suspect]
     Active Substance: LETROZOLE
     Dosage: 2.5 MG, QD
     Route: 065
     Dates: start: 20150921
  8. RECLAST [Suspect]
     Active Substance: ZOLEDRONIC ACID
     Indication: BREAST CANCER METASTATIC
     Dosage: UNK
     Route: 065
     Dates: start: 201508
  9. FEMARA [Suspect]
     Active Substance: LETROZOLE
     Indication: BREAST CANCER METASTATIC
     Dosage: UNK
     Route: 065
     Dates: start: 201508
  10. AFINITOR [Suspect]
     Active Substance: EVEROLIMUS
     Dosage: UNK
     Route: 065
     Dates: start: 201901
  11. FASLODEX [Suspect]
     Active Substance: FULVESTRANT
     Indication: BREAST CANCER METASTATIC
     Dosage: UNK
     Route: 065
     Dates: start: 20160815, end: 201610
  12. AFINITOR [Suspect]
     Active Substance: EVEROLIMUS
     Indication: BREAST CANCER METASTATIC
     Dosage: 10 MG, Q3MO
     Route: 065
     Dates: start: 20181218

REACTIONS (11)
  - Lung infection [Unknown]
  - Malignant neoplasm progression [Unknown]
  - Cough [Recovered/Resolved]
  - Tumour marker increased [Unknown]
  - Back pain [Unknown]
  - Hypertension [Unknown]
  - Breast cancer metastatic [Unknown]
  - Alveolar lung disease [Not Recovered/Not Resolved]
  - Pyrexia [Recovered/Resolved]
  - Spinal cord compression [Recovered/Resolved]
  - Metastases to lung [Unknown]

NARRATIVE: CASE EVENT DATE: 201601
